FAERS Safety Report 4748056-0 (Version None)
Quarter: 2005Q3

REPORT INFORMATION
  Report Type: 
  Country: None (occurrence: None)
  Receive Date: 20050818
  Receipt Date: 20050812
  Transmission Date: 20060218
  Serious: Yes (Hospitalization)
  Sender: FDA-Public Use
  Company Number: US-GLAXOSMITHKLINE-A0570279A

PATIENT
  Age: 11 Year
  Sex: Female

DRUGS (3)
  1. COMPAZINE [Suspect]
     Route: 065
  2. CARAFATE [Concomitant]
  3. BENTYL [Concomitant]

REACTIONS (6)
  - DRUG INEFFECTIVE [None]
  - DYSKINESIA [None]
  - DYSTONIA [None]
  - FEELING ABNORMAL [None]
  - GAZE PALSY [None]
  - HYPERSENSITIVITY [None]
